FAERS Safety Report 7133379-0 (Version None)
Quarter: 2010Q4

REPORT INFORMATION
  Report Type: 
  Country: None (occurrence: None)
  Receive Date: 20101117
  Receipt Date: 20100913
  Transmission Date: 20110411
  Serious: No
  Sender: FDA-Public Use
  Company Number: 2010-00902

PATIENT
  Age: 72 Year
  Sex: Female
  Weight: 77.1115 kg

DRUGS (16)
  1. ZICAM COLD REMEDY PLUS ORAL MIST [Suspect]
     Dosage: 3 DOSES IN 2 DAYS
     Dates: start: 20100911, end: 20100912
  2. SIMVASTATIN [Concomitant]
  3. MIRTAZAPINE [Concomitant]
  4. LEVOTHYROXINE [Concomitant]
  5. OMEPRAZOLE [Concomitant]
  6. GLUCOSAMINE W/CHONDROITIN [Concomitant]
  7. NIACIN [Concomitant]
  8. POTASSIUM CHLORIDE [Concomitant]
  9. L LYSINE [Concomitant]
  10. CALCIUM [Concomitant]
  11. CALCIUM-MAGNESIUM-ZINC [Concomitant]
  12. VITAMIN B-12 [Concomitant]
  13. FISH OIL [Concomitant]
  14. BIOTIN [Concomitant]
  15. ASPIRIN [Concomitant]
  16. KIRKLAND PREMIER WOMEN'S MULTIVITAMIN [Concomitant]

REACTIONS (3)
  - AGEUSIA [None]
  - NAUSEA [None]
  - OESOPHAGEAL PAIN [None]
